FAERS Safety Report 7124712-4 (Version None)
Quarter: 2010Q4

REPORT INFORMATION
  Report Type: 
  Country: None (occurrence: None)
  Receive Date: 20101122
  Receipt Date: 20101122
  Transmission Date: 20110411
  Serious: No
  Sender: FDA-Public Use
  Company Number: None

PATIENT
  Age: 42 Year
  Sex: Female
  Weight: 109.7705 kg

DRUGS (1)
  1. EXTAVIA [Suspect]
     Indication: MULTIPLE SCLEROSIS
     Dosage: 0.3 MG QOD SQ
     Route: 058
     Dates: start: 20100317, end: 20100519

REACTIONS (3)
  - ABDOMINAL DISTENSION [None]
  - DECREASED ACTIVITY [None]
  - OEDEMA [None]
